FAERS Safety Report 7904420-X (Version None)
Quarter: 2011Q4

REPORT INFORMATION
  Report Type: 
  Country: None (occurrence: None)
  Receive Date: 20111109
  Receipt Date: 20111103
  Transmission Date: 20120403
  Serious: Yes (Other)
  Sender: FDA-Public Use
  Company Number: US-BAYER-2011-075348

PATIENT
  Age: 65 Year
  Sex: Female

DRUGS (5)
  1. IBUPROFEN [Concomitant]
     Dosage: 400 MG, PRN
  2. XOPENEX [Concomitant]
     Route: 055
  3. INTERFERON BETA-1B [Suspect]
     Indication: RELAPSING-REMITTING MULTIPLE SCLEROSIS
     Dosage: 8 MIU, QOD
     Route: 058
     Dates: start: 19950807
  4. PREDNISONE [Concomitant]
     Dosage: 10 MG, QD
  5. INTERFERON BETA-1B [Suspect]
     Dosage: 8 MIU, QOD
     Route: 058
     Dates: start: 19950807

REACTIONS (9)
  - EATING DISORDER [None]
  - ABDOMINAL DISTENSION [None]
  - FLUID INTAKE REDUCED [None]
  - CHRONIC OBSTRUCTIVE PULMONARY DISEASE [None]
  - DYSPNOEA [None]
  - INJECTION SITE ERYTHEMA [None]
  - INJECTION SITE MASS [None]
  - LIVER DISORDER [None]
  - INJECTION SITE PAIN [None]
